FAERS Safety Report 5827520-7 (Version None)
Quarter: 2008Q3

REPORT INFORMATION
  Report Type: 
  Country: None (occurrence: None)
  Receive Date: 20080730
  Receipt Date: 20080721
  Transmission Date: 20090109
  Serious: Yes (Hospitalization)
  Sender: FDA-Public Use
  Company Number: IT-ASTRAZENECA-2008SE03571

PATIENT
  Age: 27889 Day
  Sex: Male

DRUGS (2)
  1. ESOPRAL [Suspect]
     Indication: GASTRIC ULCER
     Route: 048
     Dates: start: 20080612, end: 20080629
  2. ELAZOR [Suspect]
     Indication: OESOPHAGEAL CANDIDIASIS
     Route: 048
     Dates: start: 20080612, end: 20080625

REACTIONS (1)
  - NEUTROPENIA [None]
